FAERS Safety Report 10641096 (Version 1)
Quarter: 2014Q4

REPORT INFORMATION
  Report Type: Spontaneous
  Country: US (occurrence: None)
  Receive Date: 20141208
  Receipt Date: 20141208
  Transmission Date: 20150529
  Serious: No
  Sender: FDA-Public Use
  Company Number: None

PATIENT
  Sex: Male

DRUGS (1)
  1. XTANDI [Suspect]
     Active Substance: ENZALUTAMIDE
     Indication: PROSTATE CANCER
     Dosage: XTANDI 160MG DAILY PO
     Route: 048
     Dates: start: 20141009, end: 20141205

REACTIONS (2)
  - Gastrointestinal disorder [None]
  - Nausea [None]
